FAERS Safety Report 9132642 (Version 1)
Quarter: 2013Q1

REPORT INFORMATION
  Report Type: Spontaneous
  Country: AU (occurrence: AU)
  Receive Date: 20130301
  Receipt Date: 20130301
  Transmission Date: 20140127
  Serious: Yes (Death, Other)
  Sender: FDA-Public Use
  Company Number: PHHY2013AU020220

PATIENT
  Sex: Female

DRUGS (1)
  1. ACLASTA [Suspect]
     Dosage: 5 MG, UNK
     Route: 042
     Dates: start: 20110609

REACTIONS (7)
  - Death [Fatal]
  - Interstitial lung disease [Unknown]
  - Lung infiltration [Unknown]
  - Pulmonary function test decreased [Unknown]
  - Rales [Unknown]
  - Pneumonia [Unknown]
  - Rheumatoid arthritis [Unknown]
